FAERS Safety Report 7768528-4 (Version None)
Quarter: 2011Q3

REPORT INFORMATION
  Report Type: 
  Country: None (occurrence: None)
  Receive Date: 20110922
  Receipt Date: 20110412
  Transmission Date: 20111222
  Serious: No
  Sender: FDA-Public Use
  Company Number: US-ASTRAZENECA-2011SE21086

PATIENT
  Age: 47 Year
  Sex: Male

DRUGS (2)
  1. SEROQUEL [Suspect]
     Route: 048
  2. SEROQUEL [Suspect]
     Route: 048
     Dates: start: 20090101

REACTIONS (4)
  - MEMORY IMPAIRMENT [None]
  - INSOMNIA [None]
  - INCORRECT DOSE ADMINISTERED [None]
  - HALLUCINATION, AUDITORY [None]
